FAERS Safety Report 8818242 (Version 1)
Quarter: 2012Q4

REPORT INFORMATION
  Report Type: Report from Study
  Country: US (occurrence: US)
  Receive Date: 20121001
  Receipt Date: 20121001
  Transmission Date: 20130627
  Serious: Yes (Hospitalization)
  Sender: FDA-Public Use
  Company Number: US-GLAXOSMITHKLINE-A0989910B

PATIENT
  Age: 55 Year
  Sex: Male
  Weight: 98.8 kg

DRUGS (2)
  1. LAPATINIB [Suspect]
     Indication: HEAD AND NECK CANCER
     Dosage: 1250MG Per day
     Route: 048
     Dates: start: 20120725
  2. CAPECITABINE [Suspect]
     Indication: HEAD AND NECK CANCER
     Dosage: 2300MG Twice per day
     Dates: start: 20120725

REACTIONS (2)
  - Diarrhoea [Unknown]
  - Dehydration [Unknown]
